FAERS Safety Report 9220636 (Version 1)
Quarter: 2013Q2

REPORT INFORMATION
  Report Type: Spontaneous
  Country: US (occurrence: US)
  Receive Date: 20130409
  Receipt Date: 20130409
  Transmission Date: 20140414
  Serious: No
  Sender: FDA-Public Use
  Company Number: US-UPSHER-SMITH LABORATORIES, INC.-12001977

PATIENT
  Age: 77 Year
  Sex: Female

DRUGS (17)
  1. PREVALITE [Suspect]
     Indication: MALABSORPTION
     Dosage: 4 G, TID
     Route: 048
     Dates: start: 201110
  2. PREVALITE [Suspect]
     Dosage: UNK
  3. NEORAL [Concomitant]
     Dosage: UNK
  4. DIOVAN                             /01319601/ [Concomitant]
     Dosage: UNK
  5. PREDNISONE [Concomitant]
     Dosage: UNK
  6. PRAVASTATIN [Concomitant]
     Dosage: UNK
  7. POTASSIUM CHLORIDE [Concomitant]
     Dosage: UNK
  8. SODIUM BICARBONATE [Concomitant]
     Dosage: UNK
  9. PANTOPRAZOLE [Concomitant]
     Dosage: UNK
  10. LABETALOL [Concomitant]
     Dosage: UNK
  11. LORAZEPAM [Concomitant]
     Dosage: UNK
  12. MAGNESIUM CHLORIDE [Concomitant]
     Dosage: UNK
  13. IRON [Concomitant]
     Dosage: UNK UNK, QW
     Route: 042
     Dates: start: 201207
  14. ASPIRIN [Concomitant]
     Dosage: UNK
  15. CALCIUM CITRATE [Concomitant]
     Dosage: UNK
  16. VITAMIN D /00107901/ [Concomitant]
     Dosage: UNK
  17. VITAMIN B12                        /00056201/ [Concomitant]
     Dosage: UNK

REACTIONS (1)
  - Product taste abnormal [Not Recovered/Not Resolved]
